FAERS Safety Report 12415470 (Version 7)
Quarter: 2016Q4

REPORT INFORMATION
  Report Type: Report from Study
  Country: FR (occurrence: FR)
  Receive Date: 20160530
  Receipt Date: 20161102
  Transmission Date: 20170207
  Serious: Yes (Hospitalization)
  Sender: FDA-Public Use
  Company Number: FR-ROCHE-1715125

PATIENT
  Age: 74 Year
  Sex: Male
  Weight: 65 kg

DRUGS (37)
  1. SOLU-MEDROL [Concomitant]
     Active Substance: METHYLPREDNISOLONE SODIUM SUCCINATE
     Route: 065
     Dates: start: 20150911, end: 20150911
  2. SOLU-MEDROL [Concomitant]
     Active Substance: METHYLPREDNISOLONE SODIUM SUCCINATE
     Route: 065
     Dates: start: 20151016, end: 20151016
  3. SOLU-MEDROL [Concomitant]
     Active Substance: METHYLPREDNISOLONE SODIUM SUCCINATE
     Route: 065
     Dates: start: 20150723, end: 20150723
  4. ZOPHREN [Concomitant]
     Active Substance: ONDANSETRON
     Route: 065
     Dates: start: 20150807, end: 20150807
  5. ZOPHREN [Concomitant]
     Active Substance: ONDANSETRON
     Route: 065
     Dates: start: 20151223, end: 20151223
  6. ZOPHREN [Concomitant]
     Active Substance: ONDANSETRON
     Route: 065
     Dates: start: 20160219, end: 20160219
  7. INEXIUM [Concomitant]
     Active Substance: ESOMEPRAZOLE
     Indication: GASTROOESOPHAGEAL REFLUX DISEASE
     Route: 065
     Dates: start: 20160112, end: 20160202
  8. SOLU-MEDROL [Concomitant]
     Active Substance: METHYLPREDNISOLONE SODIUM SUCCINATE
     Route: 065
     Dates: start: 20150807, end: 20150807
  9. SOLU-MEDROL [Concomitant]
     Active Substance: METHYLPREDNISOLONE SODIUM SUCCINATE
     Route: 065
     Dates: start: 20150821, end: 20150821
  10. ZOPHREN [Concomitant]
     Active Substance: ONDANSETRON
     Route: 065
     Dates: start: 20160122, end: 20160122
  11. ZOPHREN [Concomitant]
     Active Substance: ONDANSETRON
     Route: 065
     Dates: start: 20150723, end: 20150723
  12. ZOPHREN [Concomitant]
     Active Substance: ONDANSETRON
     Route: 065
     Dates: start: 20160205, end: 20160205
  13. LEUCOVORIN. [Suspect]
     Active Substance: LEUCOVORIN
     Indication: COLORECTAL CANCER METASTATIC
     Dosage: MOST RECENT DOSE PRIOR TO EVENT: 5/FEB/2016 (AT 14:10).
     Route: 042
     Dates: start: 20151030
  14. CORTANCYL [Concomitant]
     Active Substance: PREDNISONE
     Indication: SINUSITIS
     Route: 065
     Dates: start: 20160211, end: 20160213
  15. TEMESTA (FRANCE) [Concomitant]
     Active Substance: LORAZEPAM
     Route: 065
  16. ZOPHREN [Concomitant]
     Active Substance: ONDANSETRON
     Route: 065
     Dates: start: 20150911, end: 20150911
  17. ZOPHREN [Concomitant]
     Active Substance: ONDANSETRON
     Route: 065
     Dates: start: 20151113, end: 20151113
  18. ZOPHREN [Concomitant]
     Active Substance: ONDANSETRON
     Route: 065
     Dates: start: 20151016, end: 20151016
  19. BEVACIZUMAB [Suspect]
     Active Substance: BEVACIZUMAB
     Indication: COLORECTAL CANCER METASTATIC
     Dosage: MOST RECENT DOSE PRIOR TO EVENT: 310 MG ON 5/FEB/2016 (AT 13:30).
     Route: 042
     Dates: start: 20150723
  20. PARACETAMOL [Concomitant]
     Active Substance: ACETAMINOPHEN
     Indication: NECK PAIN
     Route: 065
     Dates: start: 20150810, end: 20150821
  21. SOLU-MEDROL [Concomitant]
     Active Substance: METHYLPREDNISOLONE SODIUM SUCCINATE
     Route: 065
     Dates: start: 20151001, end: 20151001
  22. ZOPHREN [Concomitant]
     Active Substance: ONDANSETRON
     Route: 065
     Dates: start: 20151211, end: 20151211
  23. ZOPHREN [Concomitant]
     Active Substance: ONDANSETRON
     Route: 065
     Dates: start: 20150821, end: 20150821
  24. ZOPHREN [Concomitant]
     Active Substance: ONDANSETRON
     Route: 065
     Dates: start: 20151127, end: 20151127
  25. ZOPHREN [Concomitant]
     Active Substance: ONDANSETRON
     Route: 065
     Dates: start: 20151030, end: 20151030
  26. ATEZOLIZUMAB [Suspect]
     Active Substance: ATEZOLIZUMAB
     Indication: COLORECTAL CANCER METASTATIC
     Dosage: MOST RECENT DOSE PRIOR TO EVENT: 800 MG ON  5/FEB/2016 (AT 1230).
     Route: 042
     Dates: start: 20151127
  27. BRICANYL [Concomitant]
     Active Substance: TERBUTALINE SULFATE
  28. SOLU-MEDROL [Concomitant]
     Active Substance: METHYLPREDNISOLONE SODIUM SUCCINATE
     Route: 065
     Dates: start: 20151030, end: 20151030
  29. ZOPHREN [Concomitant]
     Active Substance: ONDANSETRON
     Route: 065
     Dates: start: 20151001, end: 20151001
  30. ZOPHREN [Concomitant]
     Active Substance: ONDANSETRON
     Route: 065
     Dates: start: 20160108, end: 20160108
  31. 5-FLUOROURACIL [Suspect]
     Active Substance: FLUOROURACIL
     Indication: COLORECTAL CANCER METASTATIC
     Dosage: MOST RECENT DOSE PRIOR TO EVENT: 05/FEB/2016 (AT 14:10)
     Route: 042
     Dates: start: 20151030
  32. PULMICORT TURBUHALER [Concomitant]
     Active Substance: BUDESONIDE
  33. AERIUS [Concomitant]
     Active Substance: DESLORATADINE
     Route: 065
  34. PYOSTACINE [Concomitant]
     Active Substance: PRISTINAMYCIN
     Indication: BRONCHITIS
     Route: 065
     Dates: start: 20151216, end: 20151222
  35. PYOSTACINE [Concomitant]
     Active Substance: PRISTINAMYCIN
     Indication: SINUSITIS
     Route: 065
     Dates: start: 20160211, end: 20160218
  36. SOLU-MEDROL [Concomitant]
     Active Substance: METHYLPREDNISOLONE SODIUM SUCCINATE
     Route: 065
     Dates: start: 20151113, end: 20151113
  37. PREDNISONE. [Concomitant]
     Active Substance: PREDNISONE
     Indication: BRONCHITIS
     Route: 065
     Dates: start: 20151216, end: 20151222

REACTIONS (1)
  - Bronchitis [Recovered/Resolved]

NARRATIVE: CASE EVENT DATE: 20160110
